FAERS Safety Report 9939261 (Version 1)
Quarter: 2014Q1

REPORT INFORMATION
  Report Type: Report from Study
  Country: US (occurrence: US)
  Receive Date: 20140303
  Receipt Date: 20140303
  Transmission Date: 20141002
  Serious: No
  Sender: FDA-Public Use
  Company Number: US-ABBVIE-13P-163-1032154-00

PATIENT
  Age: 44 Year
  Sex: Female

DRUGS (10)
  1. HUMIRA [Suspect]
     Indication: CROHN^S DISEASE
     Dates: start: 20121108, end: 20121206
  2. PREDNISONE [Concomitant]
     Indication: CROHN^S DISEASE
  3. TRAMADOL [Concomitant]
     Indication: PAIN
  4. OMEPRAZOLE [Concomitant]
     Indication: GASTROOESOPHAGEAL REFLUX DISEASE
     Dosage: DAILY
  5. LEVOTHYROXINE [Concomitant]
     Indication: HYPOTHYROIDISM
     Dosage: DAILY
  6. LOSARTAN [Concomitant]
     Indication: BLOOD PRESSURE
     Dosage: DAILY
  7. VENLAFAXINE [Concomitant]
     Indication: DEPRESSION
     Dosage: DAILY
  8. FERROUS SULFATE [Concomitant]
     Indication: ANAEMIA
     Dosage: DAILY
  9. MULTIPLE VITAMINS [Concomitant]
     Indication: PRODUCT USED FOR UNKNOWN INDICATION
     Dosage: DAILY
  10. VITAMIN B COMPLEX [Concomitant]
     Indication: PRODUCT USED FOR UNKNOWN INDICATION
     Dosage: DAILY

REACTIONS (2)
  - Abasia [Unknown]
  - Pain [Not Recovered/Not Resolved]
